FAERS Safety Report 6527797-9 (Version None)
Quarter: 2010Q1

REPORT INFORMATION
  Report Type: 
  Country: None (occurrence: None)
  Receive Date: 20100106
  Receipt Date: 20091218
  Transmission Date: 20100710
  Serious: No
  Sender: FDA-Public Use
  Company Number: JP-ROCHE-673036

PATIENT
  Sex: Female

DRUGS (4)
  1. TAMIFLU [Suspect]
     Indication: DRUG USE FOR UNKNOWN INDICATION
     Dosage: DRUG: TAMIFLU CAPSULE(OSELTAMIVIR).
     Route: 048
     Dates: start: 20091123, end: 20091123
  2. TAMIFLU [Suspect]
     Route: 048
     Dates: start: 20091124, end: 20091124
  3. TAMIFLU [Suspect]
     Route: 048
     Dates: start: 20091125, end: 20091125
  4. CALONAL [Concomitant]
     Dosage: DRUG: CALONAL(ACETAMINOPHEN). NOTE: CEPHALALGIA, TAKEN FOR FEVER, 200-400MG.
     Route: 048
     Dates: start: 20091123

REACTIONS (5)
  - ABDOMINAL PAIN [None]
  - DIZZINESS [None]
  - HEADACHE [None]
  - NAUSEA [None]
  - OVERDOSE [None]
